FAERS Safety Report 8052668-9 (Version None)
Quarter: 2012Q1

REPORT INFORMATION
  Report Type: 
  Country: None (occurrence: None)
  Receive Date: 20120118
  Receipt Date: 20120118
  Transmission Date: 20120608
  Serious: No
  Sender: FDA-Public Use
  Company Number: None

PATIENT
  Age: 55 Year
  Sex: Female
  Weight: 63.049 kg

DRUGS (1)
  1. DEPAKOTE [Suspect]
     Dosage: 500MG
     Route: 048

REACTIONS (1)
  - AMMONIA INCREASED [None]
